FAERS Safety Report 19769943 (Version 1)
Quarter: 2021Q3

REPORT INFORMATION
  Report Type: Spontaneous
  Country: US (occurrence: US)
  Receive Date: 20210830
  Receipt Date: 20210830
  Transmission Date: 20211014
  Serious: Yes (Death)
  Sender: FDA-Public Use
  Company Number: None

PATIENT
  Sex: Male

DRUGS (4)
  1. IBRANCE [Suspect]
     Active Substance: PALBOCICLIB
     Indication: SOFT TISSUE SARCOMA
     Route: 048
     Dates: start: 20210507
  2. IBRANCE [Suspect]
     Active Substance: PALBOCICLIB
     Indication: RENAL CANCER
     Route: 048
     Dates: start: 20210507
  3. IBRANCE [Suspect]
     Active Substance: PALBOCICLIB
     Indication: VOMITING
     Route: 048
     Dates: start: 20210507
  4. IBRANCE [Suspect]
     Active Substance: PALBOCICLIB
     Indication: NAUSEA
     Route: 048
     Dates: start: 20210507

REACTIONS (2)
  - Nausea [None]
  - Vomiting [None]
